FAERS Safety Report 16639081 (Version 1)
Quarter: 2019Q3

REPORT INFORMATION
  Report Type: Spontaneous
  Country: US (occurrence: US)
  Receive Date: 20190726
  Receipt Date: 20190726
  Transmission Date: 20191004
  Serious: No
  Sender: FDA-Public Use
  Company Number: US-IMPAX LABORATORIES, LLC-2019-IPXL-00513

PATIENT
  Age: 49 Year
  Sex: Female
  Weight: 68 kg

DRUGS (3)
  1. AMRIX [Concomitant]
     Active Substance: CYCLOBENZAPRINE HYDROCHLORIDE
     Indication: MUSCLE SPASMS
     Dosage: 30 MILLIGRAM, ONCE A DAY AT NIGHT
     Route: 065
     Dates: start: 2015
  2. OXYMORPHONE HYDROCHLORIDE ER [Suspect]
     Active Substance: OXYMORPHONE HYDROCHLORIDE
     Dosage: 10 MILLIGRAM, ONCE DAILY
     Route: 048
     Dates: start: 20190205
  3. OXYMORPHONE HYDROCHLORIDE ER [Suspect]
     Active Substance: OXYMORPHONE HYDROCHLORIDE
     Indication: PAIN
     Dosage: 10 MILLIGRAM, TWICE DAILY
     Route: 048
     Dates: start: 20190117, end: 20190205

REACTIONS (15)
  - Hair texture abnormal [Not Recovered/Not Resolved]
  - Dry skin [Not Recovered/Not Resolved]
  - Hyperhidrosis [Not Recovered/Not Resolved]
  - Palpitations [Not Recovered/Not Resolved]
  - Hypoaesthesia [Not Recovered/Not Resolved]
  - Limb discomfort [Not Recovered/Not Resolved]
  - Product substitution issue [Unknown]
  - Fatigue [Not Recovered/Not Resolved]
  - Chills [Not Recovered/Not Resolved]
  - Neuralgia [Not Recovered/Not Resolved]
  - Mental impairment [Not Recovered/Not Resolved]
  - Movement disorder [Not Recovered/Not Resolved]
  - Feeling cold [Not Recovered/Not Resolved]
  - Sedation [Not Recovered/Not Resolved]
  - Dry mouth [Not Recovered/Not Resolved]

NARRATIVE: CASE EVENT DATE: 2019
